FAERS Safety Report 11811157 (Version 3)
Quarter: 2016Q3

REPORT INFORMATION
  Report Type: Spontaneous
  Country: BR (occurrence: BR)
  Receive Date: 20151208
  Receipt Date: 20160901
  Transmission Date: 20161109
  Serious: Yes (Hospitalization, Other)
  Sender: FDA-Public Use
  Company Number: BR-JNJFOC-20150505100

PATIENT
  Age: 58 Year
  Sex: Female

DRUGS (4)
  1. FOLIC ACID. [Concomitant]
     Active Substance: FOLIC ACID
     Route: 065
  2. CORTISONE [Concomitant]
     Active Substance: CORTISONE\HYDROCORTISONE
     Route: 065
  3. METHOTREXATE. [Concomitant]
     Active Substance: METHOTREXATE
     Route: 065
  4. SIMPONI [Suspect]
     Active Substance: GOLIMUMAB
     Indication: RHEUMATOID ARTHRITIS
     Route: 058
     Dates: start: 20150126, end: 20160404

REACTIONS (6)
  - Laceration [Unknown]
  - Asthenia [Not Recovered/Not Resolved]
  - Post procedural infection [Unknown]
  - Application site reaction [Unknown]
  - Vaccine breakthrough infection [Unknown]
  - Surgery [Unknown]

NARRATIVE: CASE EVENT DATE: 20150126
